FAERS Safety Report 9455346 (Version 1)
Quarter: 2013Q3

REPORT INFORMATION
  Report Type: Spontaneous
  Country: US (occurrence: US)
  Receive Date: 20130813
  Receipt Date: 20130813
  Transmission Date: 20140515
  Serious: Yes (Hospitalization, Other)
  Sender: FDA-Public Use
  Company Number: US-ASTRAZENECA-2013SE60905

PATIENT
  Age: 73 Year
  Sex: Female

DRUGS (2)
  1. ARIMIDEX [Suspect]
     Route: 048
     Dates: start: 200909
  2. WARFARIN [Concomitant]

REACTIONS (3)
  - Pericarditis [Unknown]
  - Haemoglobin decreased [Unknown]
  - International normalised ratio increased [Unknown]
